FAERS Safety Report 12918669 (Version 1)
Quarter: 2016Q4

REPORT INFORMATION
  Report Type: Spontaneous
  Country: US (occurrence: US)
  Receive Date: 20161107
  Receipt Date: 20161107
  Transmission Date: 20170207
  Serious: Yes (Other)
  Sender: FDA-Public Use
  Company Number: US-AUROBINDO-AUR-APL-2016-13768

PATIENT
  Age: 16 Year
  Sex: Female

DRUGS (3)
  1. PROGRAF [Suspect]
     Active Substance: TACROLIMUS\TACROLIMUS ANHYDROUS
     Indication: PRODUCT USED FOR UNKNOWN INDICATION
     Dosage: UNK
     Route: 065
     Dates: start: 201310
  2. PREDNISONE. [Suspect]
     Active Substance: PREDNISONE
     Indication: PRODUCT USED FOR UNKNOWN INDICATION
     Dosage: UNK
     Route: 065
     Dates: start: 201310
  3. MYCOPHENOLATE MOFETIL. [Suspect]
     Active Substance: MYCOPHENOLATE MOFETIL
     Indication: PRODUCT USED FOR UNKNOWN INDICATION
     Dosage: UNK
     Route: 065
     Dates: start: 201310

REACTIONS (8)
  - Cytomegalovirus infection [Recovered/Resolved]
  - Fatigue [Recovered/Resolved]
  - Pancytopenia [Recovered/Resolved]
  - Treatment noncompliance [Recovered/Resolved]
  - Histiocytosis haematophagic [Recovered/Resolved]
  - Pyrexia [Recovered/Resolved]
  - Histoplasmosis [Recovered/Resolved]
  - Transplant rejection [Recovered/Resolved]
